FAERS Safety Report 5319940-4 (Version None)
Quarter: 2007Q2

REPORT INFORMATION
  Report Type: 
  Country: None (occurrence: None)
  Receive Date: 20070502
  Receipt Date: 20070419
  Transmission Date: 20071010
  Serious: Yes (Hospitalization)
  Sender: FDA-Public Use
  Company Number: S07-FRA-01774-01

PATIENT
  Age: 86 Year
  Sex: Female

DRUGS (11)
  1. CITALOPRAM HYDROBROMIDE [Suspect]
     Dosage: 75 MG QD PO
     Route: 048
     Dates: start: 20070109, end: 20070123
  2. BISOPROLOL FUMARATE [Suspect]
     Indication: HYPERTENSION
     Dosage: 1.25 MG QD PO
     Route: 048
     Dates: start: 20061201, end: 20070215
  3. ALLOPURINOL [Concomitant]
  4. MOPRAL (OMEPRAZOLE) [Concomitant]
  5. HYPERIUM (RILMENIDINE) [Concomitant]
  6. APPROVEL (IRBESARTAN) [Concomitant]
  7. SPECIAFOLDINE (FOLIC ACID) [Concomitant]
  8. PREVISCAN (FLUINDIONE) [Concomitant]
  9. LASIX [Concomitant]
  10. MORPHINE SULFATE INJ [Concomitant]
  11. PROTELOS (STRONTIUM RANELATE) [Concomitant]

REACTIONS (2)
  - ACUTE GENERALISED EXANTHEMATOUS PUSTULOSIS [None]
  - DEPRESSION [None]
